FAERS Safety Report 15306844 (Version 2)
Quarter: 2018Q3

REPORT INFORMATION
  Report Type: Spontaneous
  Country: ZA (occurrence: ZA)
  Receive Date: 20180822
  Receipt Date: 20180913
  Transmission Date: 20181010
  Serious: No
  Sender: FDA-Public Use
  Company Number: ZA-PFIZER INC-2018336584

PATIENT
  Sex: Male
  Weight: 2.7 kg

DRUGS (3)
  1. METRONIDAZOLE. [Suspect]
     Active Substance: METRONIDAZOLE
     Indication: URINARY TRACT INFECTION
     Dosage: UNK
     Route: 064
  2. AZITHROMYCIN ANHYDROUS. [Suspect]
     Active Substance: AZITHROMYCIN ANHYDROUS
     Indication: URINARY TRACT INFECTION
     Dosage: UNK
     Route: 064
  3. RINGER?LACTATE SOLUTION [Concomitant]
     Indication: PREMATURE LABOUR
     Dosage: UNK
     Route: 064

REACTIONS (1)
  - Maternal exposure during pregnancy [Recovered/Resolved]
